FAERS Safety Report 6314014-8 (Version None)
Quarter: 2009Q3

REPORT INFORMATION
  Report Type: 
  Country: None (occurrence: None)
  Receive Date: 20090818
  Receipt Date: 20090813
  Transmission Date: 20100115
  Serious: Yes (Other)
  Sender: FDA-Public Use
  Company Number: US-JNJCH-2009021905

PATIENT
  Age: 11 Month
  Sex: Male
  Weight: 11.3 kg

DRUGS (1)
  1. DESITIN CREAMY DIAPER RASH OINTMENT [Suspect]
     Indication: DERMATITIS DIAPER
     Dosage: TEXT:^DAB^ ONCE
     Route: 061
     Dates: start: 20090813, end: 20090813

REACTIONS (2)
  - APPLICATION SITE BLEEDING [None]
  - APPLICATION SITE ERYTHEMA [None]
